FAERS Safety Report 9891411 (Version 1)
Quarter: 2014Q1

REPORT INFORMATION
  Report Type: Spontaneous
  Country: US (occurrence: US)
  Receive Date: 20140212
  Receipt Date: 20140212
  Transmission Date: 20141002
  Serious: No
  Sender: FDA-Public Use
  Company Number: US-PFIZER INC-2014039344

PATIENT
  Age: 86 Year
  Sex: Female
  Weight: 68.03 kg

DRUGS (2)
  1. LYRICA [Suspect]
     Indication: FIBROMYALGIA
     Dosage: ONE 25MG CAPSULE IN EARLY EVENING OR LATE AFTERNOON AND ONE 50MG CAPSULE AT THE BED TIME
     Route: 048
  2. LYRICA [Suspect]
     Indication: NEUROPATHY PERIPHERAL

REACTIONS (3)
  - Intentional drug misuse [Unknown]
  - Expired drug administered [Unknown]
  - Body height decreased [Unknown]
